FAERS Safety Report 19987783 (Version 2)
Quarter: 2021Q4

REPORT INFORMATION
  Report Type: Report from Study
  Country: PT (occurrence: PT)
  Receive Date: 20211022
  Receipt Date: 20211111
  Transmission Date: 20220303
  Serious: Yes (Life-Threatening)
  Sender: FDA-Public Use
  Company Number: PT-SA-SAC20211021000333

PATIENT
  Age: 11 Year
  Sex: Male
  Weight: 30.1 kg

DRUGS (19)
  1. ISATUXIMAB [Suspect]
     Active Substance: ISATUXIMAB
     Indication: Acute lymphocytic leukaemia
     Dosage: 20 MG/KG, QOW
     Route: 042
     Dates: start: 20211011, end: 20211011
  2. ISATUXIMAB [Suspect]
     Active Substance: ISATUXIMAB
     Dosage: 20 MG/KG, QW
     Route: 042
     Dates: start: 20210811, end: 20210811
  3. DEXAMETHASONE [Suspect]
     Active Substance: DEXAMETHASONE
     Indication: Acute lymphocytic leukaemia
     Dosage: 10 MG/M2, QW
     Route: 065
  4. DEXAMETHASONE [Suspect]
     Active Substance: DEXAMETHASONE
     Dosage: 10 MG/M2, ON DAYS ?3 TO ?1
     Route: 065
  5. METHOTREXATE [Suspect]
     Active Substance: METHOTREXATE
     Indication: Acute lymphocytic leukaemia
     Dosage: 1000 MG/KG DAY 510
     Route: 042
  6. METHOTREXATE [Suspect]
     Active Substance: METHOTREXATE
     Dosage: 1000 MG/KG DAY 1
     Route: 042
  7. CYTARABINE [Suspect]
     Active Substance: CYTARABINE
     Indication: Acute lymphocytic leukaemia
     Dosage: ON DAY 510
  8. CYTARABINE [Suspect]
     Active Substance: CYTARABINE
     Dosage: ON DAY 1
  9. VINCRISTINE SULFATE [Suspect]
     Active Substance: VINCRISTINE SULFATE
     Indication: Acute lymphocytic leukaemia
     Dosage: 1.5 MG/M2 DAY 38
  10. VINCRISTINE SULFATE [Suspect]
     Active Substance: VINCRISTINE SULFATE
     Dosage: 1.5 MG/M2, ON DAYS 10, 17, 24, AND 31
  11. ASPARAGINASE [Suspect]
     Active Substance: ASPARAGINASE
     Indication: Acute lymphocytic leukaemia
     Dosage: 1000 IU/M? ON DAYS 44
     Route: 030
  12. ASPARAGINASE [Suspect]
     Active Substance: ASPARAGINASE
     Dosage: 1000 IU/M? ON DAYS 10 AND 24
     Route: 030
  13. DOXORUBICIN [Suspect]
     Active Substance: DOXORUBICIN
     Indication: Acute lymphocytic leukaemia
     Dosage: 25 MG/M2, ON DAYS 10, 17, 24, AND 31
     Route: 042
  14. MITOXANTRONE [Suspect]
     Active Substance: MITOXANTRONE HYDROCHLORIDE
     Indication: Acute lymphocytic leukaemia
     Dosage: 10 MG/M2, ON DAYS 8 AND 9
     Route: 042
  15. CYCLOPHOSPHAMIDE [Suspect]
     Active Substance: CYCLOPHOSPHAMIDE
     Indication: Acute lymphocytic leukaemia
     Dosage: 440 MG/M2, ON DAYS 50 TO 54
     Route: 042
     Dates: start: 20211004, end: 20211007
  16. ETOPOSIDE [Suspect]
     Active Substance: ETOPOSIDE
     Indication: Acute lymphocytic leukaemia
     Dosage: 100 MG/M2, ON DAYS 50 TO 54
     Dates: start: 20211004, end: 20211007
  17. MONTELUKAST [Concomitant]
     Active Substance: MONTELUKAST SODIUM
     Indication: Prophylaxis
     Dosage: TOTAL DAILY DOSE 5 MG
     Route: 048
     Dates: start: 20211011, end: 20211011
  18. ACETAMINOPHEN [Concomitant]
     Active Substance: ACETAMINOPHEN
     Indication: Prophylaxis
     Dosage: TOTAL DAILY DOSE500 MG
     Route: 048
     Dates: start: 20211011, end: 20211011
  19. CLEMASTINE [Concomitant]
     Active Substance: CLEMASTINE
     Indication: Prophylaxis
     Dosage: TOTAL DAILY DOSE 0.8 MG
     Route: 042
     Dates: start: 20211011, end: 20211011

REACTIONS (1)
  - Interstitial lung disease [Not Recovered/Not Resolved]

NARRATIVE: CASE EVENT DATE: 20211017
